FAERS Safety Report 13667750 (Version 3)
Quarter: 2017Q3

REPORT INFORMATION
  Report Type: Spontaneous
  Country: GB (occurrence: GB)
  Receive Date: 20170620
  Receipt Date: 20170804
  Transmission Date: 20171127
  Serious: Yes (Life-Threatening, Hospitalization)
  Sender: FDA-Public Use
  Company Number: GB-ACCORD-052595

PATIENT
  Age: 44 Year
  Sex: Female
  Weight: 44 kg

DRUGS (10)
  1. CITALOPRAM [Suspect]
     Active Substance: CITALOPRAM HYDROBROMIDE
     Indication: ANXIETY
     Dosage: STARTED WITH 10 MG THEN 20 MG AND THEN 30 MG
     Route: 048
     Dates: start: 20170201, end: 20170519
  2. QUETIAPINE. [Suspect]
     Active Substance: QUETIAPINE
     Indication: ANXIETY
     Route: 048
     Dates: start: 20170407, end: 20170421
  3. PARACETAMOL [Concomitant]
     Active Substance: ACETAMINOPHEN
  4. MIGRALEVE [Concomitant]
     Active Substance: ACETAMINOPHEN\BUCLIZINE HYDROCHLORIDE\CODEINE
  5. AMITRIPTYLINE [Suspect]
     Active Substance: AMITRIPTYLINE
     Indication: NEURALGIA
     Route: 048
     Dates: start: 20130301, end: 20170501
  6. IBUPROFEN BOOTS [Concomitant]
     Active Substance: IBUPROFEN
  7. SUMATRIPTAN. [Concomitant]
     Active Substance: SUMATRIPTAN
  8. DIAZEPAM. [Concomitant]
     Active Substance: DIAZEPAM
  9. DOXYCYCLINE. [Concomitant]
     Active Substance: DOXYCYCLINE
  10. ZOPICLONE [Concomitant]
     Active Substance: ZOPICLONE

REACTIONS (17)
  - Suicidal ideation [Recovered/Resolved with Sequelae]
  - Anxiety [Recovering/Resolving]
  - Paraesthesia [Unknown]
  - Neuralgia [Not Recovered/Not Resolved]
  - Nausea [Not Recovered/Not Resolved]
  - Feeling abnormal [Unknown]
  - Pain [Not Recovered/Not Resolved]
  - Headache [Unknown]
  - Off label use [Unknown]
  - Oedema peripheral [Recovered/Resolved with Sequelae]
  - Dizziness [Not Recovered/Not Resolved]
  - Panic reaction [Recovered/Resolved]
  - Withdrawal syndrome [Not Recovered/Not Resolved]
  - Localised oedema [Recovered/Resolved with Sequelae]
  - Oedema [Recovering/Resolving]
  - Restless legs syndrome [Not Recovered/Not Resolved]
  - Personality change [Unknown]

NARRATIVE: CASE EVENT DATE: 2017
